FAERS Safety Report 22367628 (Version 1)
Quarter: 2023Q2

REPORT INFORMATION
  Report Type: Spontaneous
  Country: PT (occurrence: PT)
  Receive Date: 20230525
  Receipt Date: 20230525
  Transmission Date: 20230722
  Serious: Yes (Life-Threatening, Hospitalization, Other)
  Sender: FDA-Public Use
  Company Number: PT-JUBILANT CADISTA PHARMACEUTICALS-2023JUB00196

PATIENT
  Age: 42 Year
  Sex: Female

DRUGS (6)
  1. AMLODIPINE [Suspect]
     Active Substance: AMLODIPINE BESYLATE
     Dosage: OVERDOSE, CUMULATIVE DOSE: 140 MG, 140 MG 1 TOTAL
  2. LOSARTAN POTASSIUM [Suspect]
     Active Substance: LOSARTAN POTASSIUM
     Dosage: OVERDOSE, CUMULATIVE DOSE: 1.4 G, 1.4 G 1 TOTAL
  3. AMOXICILLIN\CLAVULANIC ACID [Suspect]
     Active Substance: AMOXICILLIN\CLAVULANIC ACID
     Dosage: OVERDOSE, AMOXICILLIN (8 G) AND CLAVULANIC ACID (1.6 MG)
  4. ETODOLAC [Suspect]
     Active Substance: ETODOLAC
     Dosage: OVERDOSE, CUMULATIVE DOSE: 3G, 3G 1 TOTAL
  5. CARVEDILOL [Suspect]
     Active Substance: CARVEDILOL
     Dosage: OVERDOSE, CUMULATIVE DOSE: 250 MG, 250 MG 1 TOTAL
  6. ACEMETACIN [Suspect]
     Active Substance: ACEMETACIN
     Dosage: OVERDOSE, CUMULATIVE DOSE: 900 MG, 900 MG 1 TOTAL

REACTIONS (3)
  - Toxicity to various agents [Recovering/Resolving]
  - Intentional overdose [Recovering/Resolving]
  - Hypotension [Recovering/Resolving]
